FAERS Safety Report 14491202 (Version 2)
Quarter: 2018Q2

REPORT INFORMATION
  Report Type: Spontaneous
  Country: JP (occurrence: JP)
  Receive Date: 20180206
  Receipt Date: 20180406
  Transmission Date: 20180711
  Serious: Yes (Other)
  Sender: FDA-Public Use
  Company Number: JP-ROCHE-2065455

PATIENT
  Age: 80 Year
  Sex: Male

DRUGS (5)
  1. LUCENTIS [Suspect]
     Active Substance: RANIBIZUMAB
     Indication: POLYPOIDAL CHOROIDAL VASCULOPATHY
     Dosage: UNK
     Route: 031
     Dates: start: 20121226, end: 20140822
  2. VISUDYNE [Suspect]
     Active Substance: VERTEPORFIN
     Indication: POLYPOIDAL CHOROIDAL VASCULOPATHY
     Dosage: UNK
     Route: 042
     Dates: start: 20160720, end: 20160720
  3. VISUDYNE [Suspect]
     Active Substance: VERTEPORFIN
     Indication: AGE-RELATED MACULAR DEGENERATION
  4. LUCENTIS [Suspect]
     Active Substance: RANIBIZUMAB
     Indication: AGE-RELATED MACULAR DEGENERATION
  5. EYLEA [Concomitant]
     Active Substance: AFLIBERCEPT
     Indication: POLYPOIDAL CHOROIDAL VASCULOPATHY
     Dosage: UNK
     Route: 031
     Dates: start: 20140920, end: 20160713

REACTIONS (5)
  - Subretinal fluid [Recovered/Resolved]
  - Visual acuity reduced [Unknown]
  - Polypoidal choroidal vasculopathy [Unknown]
  - Disease progression [Unknown]
  - Cataract [Recovered/Resolved]

NARRATIVE: CASE EVENT DATE: 20130529
